FAERS Safety Report 9383290 (Version 1)
Quarter: 2013Q3

REPORT INFORMATION
  Report Type: Spontaneous
  Country: CA (occurrence: CA)
  Receive Date: 20130704
  Receipt Date: 20130704
  Transmission Date: 20140515
  Serious: Yes (Other)
  Sender: FDA-Public Use
  Company Number: CA-ASTRAZENECA-2013SE47922

PATIENT
  Age: 66 Year
  Sex: Male
  Weight: 63 kg

DRUGS (4)
  1. CRESTOR [Suspect]
     Indication: ACUTE CORONARY SYNDROME
     Route: 048
  2. BRILINTA [Suspect]
     Indication: ACUTE CORONARY SYNDROME
     Route: 048
     Dates: start: 20120606, end: 20121011
  3. COVERSYL [Concomitant]
     Indication: BLOOD PRESSURE ABNORMAL
     Route: 048
     Dates: start: 20050101
  4. MONOCURE [Concomitant]
     Indication: BLOOD PRESSURE ABNORMAL
     Route: 048

REACTIONS (3)
  - Myalgia [Not Recovered/Not Resolved]
  - Gait disturbance [Unknown]
  - Swelling [Not Recovered/Not Resolved]
